FAERS Safety Report 4819058-0 (Version None)
Quarter: 2005Q4

REPORT INFORMATION
  Report Type: 
  Country: None (occurrence: None)
  Receive Date: 20051102
  Receipt Date: 20051102
  Transmission Date: 20060501
  Serious: No
  Sender: FDA-Public Use
  Company Number: None

PATIENT
  Age: 76 Year
  Sex: Female
  Weight: 59.8748 kg

DRUGS (10)
  1. FLUCONAZOLE    100MG    ROXANE [Suspect]
     Indication: VULVOVAGINAL DISCOMFORT
     Dosage: 150MG   QOD   PO
     Route: 048
     Dates: start: 20051009, end: 20051013
  2. PRAVACHOL [Suspect]
     Indication: DYSLIPIDAEMIA
     Dosage: 40MG  QHS  PO
     Route: 048
     Dates: start: 20051009, end: 20051012
  3. SYNTHROID [Concomitant]
  4. LASIX [Concomitant]
  5. PREVACID [Concomitant]
  6. COUMADIN [Concomitant]
  7. SENOKOT [Concomitant]
  8. REGULAR INSULIN [Concomitant]
  9. FERROUS SULFATE  (FESO4) [Concomitant]
  10. LOPRESSOR [Concomitant]

REACTIONS (1)
  - HEPATIC ENZYME INCREASED [None]
